FAERS Safety Report 5040687-6 (Version None)
Quarter: 2006Q2

REPORT INFORMATION
  Report Type: 
  Country: None (occurrence: None)
  Receive Date: 20060629
  Receipt Date: 20060629
  Transmission Date: 20061013
  Serious: No
  Sender: FDA-Public Use
  Company Number: None

PATIENT
  Sex: Male
  Weight: 92.9874 kg

DRUGS (3)
  1. DOXEPIN HCL [Suspect]
     Indication: INSOMNIA
     Dosage: 50 MG QHS PO
     Route: 048
     Dates: start: 20060228, end: 20060306
  2. DOXEPIN HCL [Suspect]
     Indication: PANIC DISORDER
     Dosage: 50 MG QHS PO
     Route: 048
     Dates: start: 20060228, end: 20060306
  3. CLONAZEPAM [Concomitant]

REACTIONS (2)
  - ABNORMAL DREAMS [None]
  - ANXIETY DISORDER [None]
